FAERS Safety Report 8953123 (Version 6)
Quarter: 2013Q1

REPORT INFORMATION
  Report Type: Spontaneous
  Country: US (occurrence: US)
  Receive Date: 20121206
  Receipt Date: 20130306
  Transmission Date: 20140127
  Serious: No
  Sender: FDA-Public Use
  Company Number: US-009507513-1211USA010939

PATIENT
  Sex: Female
  Weight: 104.76 kg

DRUGS (2)
  1. IMPLANON [Suspect]
     Indication: CONTRACEPTION
     Dosage: 1 ROD
     Dates: start: 20111117
  2. KEFLEX [Concomitant]

REACTIONS (3)
  - Complication of device removal [Unknown]
  - Medical device complication [Unknown]
  - No adverse event [Unknown]
